FAERS Safety Report 17294876 (Version 1)
Quarter: 2020Q1

REPORT INFORMATION
  Report Type: Spontaneous
  Country: JO (occurrence: JO)
  Receive Date: 20200121
  Receipt Date: 20200121
  Transmission Date: 20200409
  Serious: Yes (Death, Hospitalization)
  Sender: FDA-Public Use
  Company Number: JO-AMNEAL PHARMACEUTICALS-2020-AMRX-00184

PATIENT
  Age: 40 Year
  Sex: Female

DRUGS (4)
  1. MIRTAZAPINE ODT [Suspect]
     Active Substance: MIRTAZAPINE
     Indication: PSYCHOTIC SYMPTOM
     Dosage: UNK
     Route: 065
  2. QUETIAPINE FUMARATE. [Suspect]
     Active Substance: QUETIAPINE FUMARATE
     Indication: PSYCHOTIC SYMPTOM
     Dosage: UNK
     Route: 065
  3. LAMOTRIGINE ODT [Suspect]
     Active Substance: LAMOTRIGINE
     Indication: PSYCHOTIC SYMPTOM
     Dosage: UNK
     Route: 065
  4. VENLAFAXINE HYDROCHLORIDE. [Suspect]
     Active Substance: VENLAFAXINE HYDROCHLORIDE
     Indication: PSYCHOTIC SYMPTOM
     Dosage: UNK
     Route: 065

REACTIONS (3)
  - Multiple organ dysfunction syndrome [Fatal]
  - Septic shock [Fatal]
  - Agranulocytosis [Fatal]
